FAERS Safety Report 5471957-5 (Version None)
Quarter: 2007Q3

REPORT INFORMATION
  Report Type: 
  Country: None (occurrence: None)
  Receive Date: 20070928
  Receipt Date: 20070919
  Transmission Date: 20080115
  Serious: No
  Sender: FDA-Public Use
  Company Number: GB-PFIZER INC-2007074927

PATIENT
  Sex: Female
  Weight: 120.7 kg

DRUGS (5)
  1. DIFLUCAN [Suspect]
     Indication: PROPHYLAXIS
     Route: 048
     Dates: start: 20070704, end: 20070709
  2. XELODA [Suspect]
     Indication: BREAST CANCER METASTATIC
  3. TAXOTERE [Suspect]
     Indication: BREAST CANCER METASTATIC
     Route: 042
  4. LASIX [Concomitant]
  5. NEUPOGEN [Concomitant]

REACTIONS (3)
  - ABDOMINAL PAIN [None]
  - DIARRHOEA [None]
  - VOMITING [None]
